FAERS Safety Report 8307263-0 (Version None)
Quarter: 2012Q2

REPORT INFORMATION
  Report Type: 
  Country: None (occurrence: None)
  Receive Date: 20120424
  Receipt Date: 20120418
  Transmission Date: 20120825
  Serious: Yes (Hospitalization)
  Sender: FDA-Public Use
  Company Number: US-BAYER-2012-039314

PATIENT
  Age: 44 Year
  Sex: Female

DRUGS (3)
  1. YAZ [Suspect]
  2. WELLBUTRIN XL [Concomitant]
     Dosage: 150 MG, QD
     Route: 048
     Dates: start: 20040903, end: 20080211
  3. FLUCONAZOLE [Concomitant]
     Dosage: 150 MG, ONCE
     Dates: start: 20060720

REACTIONS (1)
  - DEEP VEIN THROMBOSIS [None]
